FAERS Safety Report 25632043 (Version 1)
Quarter: 2025Q3

REPORT INFORMATION
  Report Type: Report from Study
  Country: US (occurrence: US)
  Receive Date: 20250801
  Receipt Date: 20250801
  Transmission Date: 20251020
  Serious: Yes (Other)
  Sender: ALEXION PHARMACEUTICALS
  Company Number: US-AstraZeneca-CH-00918576A

PATIENT
  Sex: Female

DRUGS (2)
  1. SOLIRIS [Suspect]
     Active Substance: ECULIZUMAB
     Indication: Paroxysmal nocturnal haemoglobinuria
     Route: 065
  2. ULTOMIRIS [Suspect]
     Active Substance: RAVULIZUMAB-CWVZ
     Route: 065

REACTIONS (13)
  - Thyroid cancer [Unknown]
  - Syncope [Unknown]
  - Infusion related reaction [Unknown]
  - Diarrhoea [Unknown]
  - Dizziness [Unknown]
  - Nausea [Unknown]
  - Tremor [Unknown]
  - Food poisoning [Unknown]
  - Gait disturbance [Unknown]
  - Insomnia [Unknown]
  - Ocular hyperaemia [Unknown]
  - Gastrointestinal sounds abnormal [Unknown]
  - Malaise [Unknown]
